FAERS Safety Report 14669107 (Version 3)
Quarter: 2020Q3

REPORT INFORMATION
  Report Type: Spontaneous
  Country: US (occurrence: US)
  Receive Date: 20180322
  Receipt Date: 20200710
  Transmission Date: 20201102
  Serious: Yes (Other)
  Sender: FDA-Public Use
  Company Number: US-PFIZER INC-2018114171

PATIENT
  Age: 57 Year
  Sex: Female

DRUGS (1)
  1. XELJANZ XR [Suspect]
     Active Substance: TOFACITINIB CITRATE
     Dosage: 11 MG, UNK

REACTIONS (6)
  - Rheumatoid arthritis [Unknown]
  - Bacterial infection [Unknown]
  - Urinary tract infection [Unknown]
  - Confusional state [Unknown]
  - Alopecia [Unknown]
  - Feeling abnormal [Unknown]
